FAERS Safety Report 14815992 (Version 1)
Quarter: 2018Q2

REPORT INFORMATION
  Report Type: Spontaneous
  Country: US (occurrence: US)
  Receive Date: 20180426
  Receipt Date: 20180426
  Transmission Date: 20180711
  Serious: No
  Sender: FDA-Public Use
  Company Number: US-TEVA-2018-US-864837

PATIENT
  Sex: Female

DRUGS (1)
  1. GABAPENTIN. [Suspect]
     Active Substance: GABAPENTIN
     Indication: POST HERPETIC NEURALGIA
     Route: 065

REACTIONS (8)
  - Abdominal distension [Unknown]
  - Irritability [Unknown]
  - Abdominal discomfort [Unknown]
  - Headache [Unknown]
  - Nausea [Unknown]
  - Peripheral swelling [Unknown]
  - Somnolence [Unknown]
  - Pain [Unknown]

NARRATIVE: CASE EVENT DATE: 20180217
